FAERS Safety Report 6295322-6 (Version None)
Quarter: 2009Q3

REPORT INFORMATION
  Report Type: 
  Country: None (occurrence: None)
  Receive Date: 20090803
  Receipt Date: 20090626
  Transmission Date: 20100115
  Serious: Yes (Hospitalization)
  Sender: FDA-Public Use
  Company Number: DE-BAXTER-2009BH008127

PATIENT
  Age: 61 Year
  Sex: Female

DRUGS (5)
  1. CIPROFLOXACIN REDIBAG [Suspect]
     Indication: DIVERTICULITIS
     Route: 065
  2. CIPROFLOXACIN REDIBAG [Suspect]
     Route: 065
  3. METRONIDAZOLE [Suspect]
     Indication: DIVERTICULITIS
     Route: 065
  4. METRONIDAZOLE [Suspect]
     Route: 065
  5. BISOPROLOL FUMARATE [Concomitant]
     Indication: DRUG USE FOR UNKNOWN INDICATION
     Dosage: DAILY DOSE: 1 DF DOSAGE FORM EVERY DAY
     Route: 065

REACTIONS (1)
  - PANCREATITIS [None]
